FAERS Safety Report 17650042 (Version 1)
Quarter: 2020Q2

REPORT INFORMATION
  Report Type: Spontaneous
  Country: US (occurrence: US)
  Receive Date: 20200409
  Receipt Date: 20200409
  Transmission Date: 20200713
  Serious: Yes (Other)
  Sender: FDA-Public Use
  Company Number: US-SUN PHARMACEUTICAL INDUSTRIES LTD-2020R1-242768

PATIENT
  Age: 17 Year
  Sex: Female

DRUGS (3)
  1. AMPHOTERICIN B. [Suspect]
     Active Substance: AMPHOTERICIN B
     Dosage: 40 MILLIGRAM (3 DAYS WEEKLY), UNK
     Route: 042
  2. KETOCONAZOLE. [Suspect]
     Active Substance: KETOCONAZOLE
     Indication: BLASTOMYCOSIS
     Dosage: 2 PERCENT, BID
     Route: 061
  3. AMPHOTERICIN B. [Suspect]
     Active Substance: AMPHOTERICIN B
     Indication: BLASTOMYCOSIS
     Dosage: 20 MILLIGRAM, DAILY
     Route: 042

REACTIONS (3)
  - Live birth [Unknown]
  - Electrolyte imbalance [Unknown]
  - Exposure during pregnancy [Unknown]
